FAERS Safety Report 11205564 (Version 1)
Quarter: 2015Q2

REPORT INFORMATION
  Report Type: Spontaneous
  Country: US (occurrence: None)
  Receive Date: 20150619
  Receipt Date: 20150619
  Transmission Date: 20150821
  Serious: Yes (Hospitalization)
  Sender: FDA-Public Use
  Company Number: None

PATIENT
  Age: 31 Year
  Sex: Female
  Weight: 55 kg

DRUGS (3)
  1. HUMALOG VIA MEDTRONIC MINI-MED PARADIGM [Concomitant]
  2. MULTI-VIT [Concomitant]
     Active Substance: VITAMINS
  3. INVOKANA [Suspect]
     Active Substance: CANAGLIFLOZIN
     Indication: DIABETES MELLITUS
     Dosage: 3 MONTHS

REACTIONS (2)
  - Hypophagia [None]
  - Diabetic ketoacidosis [None]

NARRATIVE: CASE EVENT DATE: 20150616
